FAERS Safety Report 4587520-4 (Version None)
Quarter: 2005Q1

REPORT INFORMATION
  Report Type: 
  Country: None (occurrence: None)
  Receive Date: 20050215
  Receipt Date: 20040507
  Transmission Date: 20050727
  Serious: No
  Sender: FDA-Public Use
  Company Number: C04-T-066

PATIENT

DRUGS (1)
  1. NITROGLYCERIN TABLETS, USP 0.6 MG [Suspect]

REACTIONS (1)
  - DRUG INEFFECTIVE [None]
